FAERS Safety Report 13981097 (Version 1)
Quarter: 2017Q3

REPORT INFORMATION
  Report Type: Spontaneous
  Country: US (occurrence: US)
  Receive Date: 20170918
  Receipt Date: 20170918
  Transmission Date: 20171128
  Serious: Yes (Other)
  Sender: FDA-Public Use
  Company Number: US-TEVA-795201USA

PATIENT
  Sex: Female

DRUGS (3)
  1. WELLBUTRIN SR [Suspect]
     Active Substance: BUPROPION HYDROCHLORIDE
     Dosage: 100
     Route: 065
  2. ALPRAZOLAM (NON TEVA) [Concomitant]
  3. BUPROPION. [Suspect]
     Active Substance: BUPROPION
     Indication: DEPRESSION
     Dates: start: 201701, end: 20170727

REACTIONS (7)
  - Rash [Unknown]
  - Suicidal ideation [Recovered/Resolved]
  - Disorientation [Unknown]
  - Depression [Unknown]
  - Sudden onset of sleep [Unknown]
  - Malaise [Unknown]
  - Detoxification [Unknown]

NARRATIVE: CASE EVENT DATE: 201701
